FAERS Safety Report 11158156 (Version 1)
Quarter: 2015Q2

REPORT INFORMATION
  Report Type: Spontaneous
  Country: JP (occurrence: JP)
  Receive Date: 20150603
  Receipt Date: 20150603
  Transmission Date: 20150821
  Serious: Yes (Other)
  Sender: FDA-Public Use
  Company Number: JP-MYLANLABS-2015M1017107

PATIENT

DRUGS (1)
  1. CARBOPLATIN INJECTION 50 MG ^NK^ [Suspect]
     Active Substance: CARBOPLATIN
     Indication: MEDULLOBLASTOMA
     Dosage: 5 DAYS/WEEK, FOR 6 WEEKS
     Route: 041

REACTIONS (6)
  - Nausea [Recovering/Resolving]
  - Device related infection [Recovering/Resolving]
  - Vomiting [Recovering/Resolving]
  - Staphylococcal infection [Recovering/Resolving]
  - Stomatitis [Recovered/Resolved]
  - Sialoadenitis [Recovered/Resolved]
